FAERS Safety Report 5609543-6 (Version None)
Quarter: 2008Q1

REPORT INFORMATION
  Report Type: 
  Country: None (occurrence: None)
  Receive Date: 20080131
  Receipt Date: 20080108
  Transmission Date: 20080703
  Serious: No
  Sender: FDA-Public Use
  Company Number: US-BOEHRINGER INGELHEIM GMBH, GERMANY-2007-BP-25638BP

PATIENT
  Sex: Female

DRUGS (16)
  1. SPIRIVA [Suspect]
     Indication: EMPHYSEMA
     Route: 055
     Dates: start: 20060101
  2. SPIRIVA [Suspect]
     Indication: BRONCHITIS CHRONIC
  3. ATROVENT HFA [Concomitant]
  4. COMBIVENT [Concomitant]
  5. ADVAIR DISKUS 100/50 [Concomitant]
  6. ALBUTEROL SULFATE [Concomitant]
  7. DUONEB [Concomitant]
  8. XALATAN [Concomitant]
  9. AZOPT [Concomitant]
  10. SOTALOL HYDROCHLORIDE [Concomitant]
  11. PROTONIX [Concomitant]
  12. FUROSEMIDE [Concomitant]
  13. POTASSIUM CHLORIDE [Concomitant]
  14. SENNA-S [Concomitant]
  15. LIPITOR [Concomitant]
  16. COUMADIN [Concomitant]

REACTIONS (1)
  - THERAPEUTIC REACTION TIME DECREASED [None]
